FAERS Safety Report 5350130-5 (Version None)
Quarter: 2007Q2

REPORT INFORMATION
  Report Type: 
  Country: None (occurrence: None)
  Receive Date: 20070607
  Receipt Date: 20070604
  Transmission Date: 20071010
  Serious: Yes (Other)
  Sender: FDA-Public Use
  Company Number: US-MERCK-0611USA05355

PATIENT
  Age: 74 Year
  Sex: Female

DRUGS (8)
  1. FOSAMAX [Suspect]
     Indication: OSTEOPOROSIS
     Route: 048
     Dates: start: 19980201
  2. FOSAMAX [Suspect]
     Route: 048
     Dates: end: 20051101
  3. FOSAMAX [Suspect]
     Route: 065
     Dates: start: 20050401, end: 20060701
  4. SYNTHROID [Concomitant]
     Route: 065
     Dates: start: 19720101
  5. LASIX [Concomitant]
     Route: 065
     Dates: start: 19830101
  6. POTASSIUM (UNSPECIFIED) [Concomitant]
     Route: 065
     Dates: start: 19830101
  7. LIPITOR [Concomitant]
     Route: 065
     Dates: start: 19960101
  8. ACTONEL [Concomitant]
     Route: 065
     Dates: start: 20020201

REACTIONS (41)
  - ABASIA [None]
  - ABDOMINAL PAIN [None]
  - ANXIETY [None]
  - ARTHRALGIA [None]
  - ARTHRITIS [None]
  - BREAST MASS [None]
  - BREAST MICROCALCIFICATION [None]
  - CATARACT NUCLEAR [None]
  - COUGH [None]
  - DEPRESSION [None]
  - DIZZINESS [None]
  - DRUG INEFFECTIVE [None]
  - FATIGUE [None]
  - FOOT DEFORMITY [None]
  - HAEMATURIA [None]
  - HAEMOPTYSIS [None]
  - HEADACHE [None]
  - INTERVERTEBRAL DISC DEGENERATION [None]
  - INTERVERTEBRAL DISC PROTRUSION [None]
  - JAW FRACTURE [None]
  - LIVER DISORDER [None]
  - MOUTH HAEMORRHAGE [None]
  - MUSCLE SPASMS [None]
  - MUSCULAR WEAKNESS [None]
  - MUSCULOSKELETAL PAIN [None]
  - MYOCARDIAL INFARCTION [None]
  - NASAL CONGESTION [None]
  - NECK PAIN [None]
  - OSTEOMYELITIS [None]
  - OSTEONECROSIS [None]
  - OVARIAN ATROPHY [None]
  - PATHOLOGICAL FRACTURE [None]
  - PELVIC PAIN [None]
  - POSTMENOPAUSAL HAEMORRHAGE [None]
  - PULMONARY MASS [None]
  - SINUS DISORDER [None]
  - SPINAL OSTEOARTHRITIS [None]
  - SPONDYLOLISTHESIS [None]
  - TENDONITIS [None]
  - UTERINE ATROPHY [None]
  - VITREOUS DETACHMENT [None]
